FAERS Safety Report 8275391-4 (Version None)
Quarter: 2012Q2

REPORT INFORMATION
  Report Type: 
  Country: None (occurrence: None)
  Receive Date: 20120411
  Receipt Date: 20120409
  Transmission Date: 20120825
  Serious: Yes (Disabling)
  Sender: FDA-Public Use
  Company Number: US-MERCK-1202USA02596

PATIENT
  Age: 48 Year
  Sex: Female

DRUGS (1)
  1. SINGULAIR [Suspect]
     Route: 048
     Dates: start: 20110901

REACTIONS (7)
  - ABNORMAL BEHAVIOUR [None]
  - IRRITABILITY [None]
  - NERVOUSNESS [None]
  - HYPERAESTHESIA [None]
  - URTICARIA [None]
  - HYPERACUSIS [None]
  - PHONOPHOBIA [None]
